FAERS Safety Report 6141268-3 (Version None)
Quarter: 2009Q2

REPORT INFORMATION
  Report Type: 
  Country: None (occurrence: None)
  Receive Date: 20090402
  Receipt Date: 20090323
  Transmission Date: 20091009
  Serious: Yes (Other)
  Sender: FDA-Public Use
  Company Number: PL-ABBOTT-09P-129-0563878-00

PATIENT
  Age: 39 Year
  Sex: Male

DRUGS (4)
  1. CYCLOSPORINE [Suspect]
     Indication: RENAL TRANSPLANT
     Dosage: NOT REPORTED
  2. EVEROLIMUS [Concomitant]
     Indication: RENAL TRANSPLANT
  3. PREDNISONE [Concomitant]
     Indication: RENAL TRANSPLANT
     Dosage: NOT REPORTED
  4. MYCOPHENOLATE MOFETIL [Concomitant]
     Indication: RENAL TRANSPLANT
     Dosage: NOT REPORTED

REACTIONS (2)
  - GLOMERULONEPHRITIS [None]
  - NEPHROPATHY TOXIC [None]
